FAERS Safety Report 5606687-X (Version None)
Quarter: 2008Q1

REPORT INFORMATION
  Report Type: 
  Country: None (occurrence: None)
  Receive Date: 20080129
  Receipt Date: 20071016
  Transmission Date: 20080703
  Serious: No
  Sender: FDA-Public Use
  Company Number: A0687995A

PATIENT
  Age: 41 Year
  Sex: Female

DRUGS (1)
  1. COMBIVIR [Suspect]
     Route: 048
     Dates: start: 20061101

REACTIONS (2)
  - BLOOD PRESSURE INCREASED [None]
  - RENAL IMPAIRMENT [None]
